FAERS Safety Report 13014604 (Version 2)
Quarter: 2017Q1

REPORT INFORMATION
  Report Type: Spontaneous
  Country: US (occurrence: US)
  Receive Date: 20161209
  Receipt Date: 20170217
  Transmission Date: 20170428
  Serious: No
  Sender: FDA-Public Use
  Company Number: US-ASTRAZENECA-2016SF21541

PATIENT
  Sex: Male
  Weight: 59.9 kg

DRUGS (2)
  1. TUDORZA PRESSAIR [Suspect]
     Active Substance: ACLIDINIUM BROMIDE
     Route: 055
     Dates: start: 20161024
  2. OXYGEN. [Concomitant]
     Active Substance: OXYGEN
     Dosage: NIGHT FOR YEARS

REACTIONS (3)
  - Dyspnoea [Unknown]
  - Off label use [Unknown]
  - Device malfunction [Unknown]
